FAERS Safety Report 5776569-1 (Version None)
Quarter: 2008Q2

REPORT INFORMATION
  Report Type: 
  Country: None (occurrence: None)
  Receive Date: 20080616
  Receipt Date: 20080602
  Transmission Date: 20081010
  Serious: Yes (Hospitalization)
  Sender: FDA-Public Use
  Company Number: 235218J08USA

PATIENT
  Age: 49 Year
  Sex: Female

DRUGS (2)
  1. REBIF [Suspect]
     Indication: MULTIPLE SCLEROSIS
     Dosage: 44 MCG, 3 IN 1 WEEKS, SUBCUTANEOUS
     Route: 058
     Dates: start: 20050721
  2. SEPTRA [Concomitant]

REACTIONS (4)
  - FACIAL BONES FRACTURE [None]
  - INCISION SITE COMPLICATION [None]
  - LYMPHADENOPATHY [None]
  - MASS [None]
